FAERS Safety Report 7403258-X (Version None)
Quarter: 2011Q2

REPORT INFORMATION
  Report Type: 
  Country: None (occurrence: None)
  Receive Date: 20110408
  Receipt Date: 20110406
  Transmission Date: 20111010
  Serious: Yes (Other)
  Sender: FDA-Public Use
  Company Number: US-AMGEN-USASP2011018523

PATIENT
  Age: 34 Year
  Sex: Female

DRUGS (1)
  1. NPLATE [Suspect]
     Indication: IDIOPATHIC THROMBOCYTOPENIC PURPURA
     Dates: start: 20091030, end: 20100408

REACTIONS (3)
  - CEREBRAL HAEMORRHAGE [None]
  - SUBDURAL HAEMORRHAGE [None]
  - THERAPEUTIC RESPONSE DECREASED [None]
